FAERS Safety Report 7735643-0 (Version None)
Quarter: 2011Q3

REPORT INFORMATION
  Report Type: 
  Country: None (occurrence: None)
  Receive Date: 20110907
  Receipt Date: 20110901
  Transmission Date: 20111222
  Serious: Yes (Hospitalization)
  Sender: FDA-Public Use
  Company Number: FR-GILEAD-2011-0043531

PATIENT
  Sex: Male
  Weight: 41 kg

DRUGS (9)
  1. ATRIPLA [Suspect]
     Indication: HIV INFECTION
     Route: 048
  2. CRESTOR [Concomitant]
  3. EPREX [Concomitant]
  4. CYCLOPHOSPHAMIDE [Suspect]
     Indication: GASTROINTESTINAL INFLAMMATION
     Dosage: ONE SINGLE DOSE
     Route: 042
     Dates: start: 20110725, end: 20110725
  5. ATENOLOL [Concomitant]
  6. COLCHICINE [Concomitant]
  7. ASPIRIN [Concomitant]
  8. PENTASA [Concomitant]
  9. PREDNISONE [Concomitant]

REACTIONS (1)
  - METABOLIC ACIDOSIS [None]
